FAERS Safety Report 21961264 (Version 1)
Quarter: 2023Q1

REPORT INFORMATION
  Report Type: Report from Study
  Country: US (occurrence: US)
  Receive Date: 20230207
  Receipt Date: 20230207
  Transmission Date: 20230417
  Serious: Yes (Other)
  Sender: FDA-Public Use
  Company Number: US-ABBVIE-4297817

PATIENT
  Sex: Male

DRUGS (1)
  1. SKYRIZI [Suspect]
     Active Substance: RISANKIZUMAB-RZAA
     Indication: Psoriasis
     Dosage: 150 MG
     Route: 058
     Dates: start: 202208

REACTIONS (6)
  - Disability [Unknown]
  - Depression [Unknown]
  - Chest discomfort [Recovered/Resolved]
  - Blood pressure fluctuation [Unknown]
  - Anxiety [Unknown]
  - Feeling abnormal [Recovered/Resolved]
